FAERS Safety Report 9636981 (Version 1)
Quarter: 2013Q4

REPORT INFORMATION
  Report Type: Spontaneous
  Country: US (occurrence: US)
  Receive Date: 20131022
  Receipt Date: 20131022
  Transmission Date: 20140711
  Serious: Yes (Other)
  Sender: FDA-Public Use
  Company Number: US-AMGEN-USASP2013073666

PATIENT
  Age: 49 Year
  Sex: Male

DRUGS (1)
  1. ENBREL [Suspect]
     Indication: RHEUMATOID ARTHRITIS
     Dosage: UNK
     Route: 065
     Dates: start: 20130401

REACTIONS (7)
  - Drug dependence [Unknown]
  - Aphagia [Unknown]
  - Blood pressure increased [Unknown]
  - Insomnia [Unknown]
  - Vomiting [Unknown]
  - Chills [Unknown]
  - Feeling abnormal [Unknown]
